FAERS Safety Report 4608881-3 (Version None)
Quarter: 2005Q1

REPORT INFORMATION
  Report Type: 
  Country: None (occurrence: None)
  Receive Date: 20050311
  Receipt Date: 20050303
  Transmission Date: 20050727
  Serious: Yes (Hospitalization)
  Sender: FDA-Public Use
  Company Number: 2005-00797

PATIENT
  Age: 35 Year
  Sex: Male

DRUGS (2)
  1. FLUOROURACIL [Suspect]
     Indication: CARCINOID TUMOUR OF THE CAECUM
     Dosage: 950 MG, DAILY, INTRAVENOUS
     Route: 042
  2. LEUCOVORIN CALCIUM [Concomitant]

REACTIONS (2)
  - DRUG TOXICITY [None]
  - MULTI-ORGAN FAILURE [None]
